FAERS Safety Report 19506690 (Version 3)
Quarter: 2022Q1

REPORT INFORMATION
  Report Type: Spontaneous
  Country: US (occurrence: US)
  Receive Date: 20210708
  Receipt Date: 20220307
  Transmission Date: 20220423
  Serious: No
  Sender: FDA-Public Use
  Company Number: US-PFIZER INC-2021703546

PATIENT
  Age: 63 Year
  Sex: Female

DRUGS (1)
  1. XELJANZ XR [Suspect]
     Active Substance: TOFACITINIB CITRATE
     Dosage: 11 MG

REACTIONS (6)
  - Malaise [Unknown]
  - Crying [Unknown]
  - Pain [Unknown]
  - Migraine [Unknown]
  - Pain in extremity [Unknown]
  - Drug ineffective [Unknown]
